FAERS Safety Report 7483898-2 (Version None)
Quarter: 2011Q2

REPORT INFORMATION
  Report Type: 
  Country: None (occurrence: None)
  Receive Date: 20110513
  Receipt Date: 20110513
  Transmission Date: 20111010
  Serious: Yes (Hospitalization)
  Sender: FDA-Public Use
  Company Number: None

PATIENT
  Age: 78 Year
  Sex: Male
  Weight: 67 kg

DRUGS (1)
  1. MOXIFLOXACIN [Suspect]
     Indication: PNEUMONIA
     Dosage: 400 MG EVERY DAY PO
     Route: 048
     Dates: start: 20110225, end: 20110307

REACTIONS (3)
  - SMALL INTESTINAL OBSTRUCTION [None]
  - DIARRHOEA [None]
  - CLOSTRIDIUM TEST POSITIVE [None]
